FAERS Safety Report 10206490 (Version 1)
Quarter: 2014Q2

REPORT INFORMATION
  Report Type: Spontaneous
  Country: FR (occurrence: FR)
  Receive Date: 20140530
  Receipt Date: 20140530
  Transmission Date: 20141212
  Serious: Yes (Hospitalization)
  Sender: FDA-Public Use
  Company Number: FR-JNJFOC-20140515706

PATIENT
  Age: 20 Month
  Sex: Male
  Weight: 10 kg

DRUGS (7)
  1. REMICADE [Suspect]
     Indication: CROHN^S DISEASE
     Dosage: 100 MG
     Route: 042
     Dates: start: 20131115
  2. REMICADE [Suspect]
     Indication: CROHN^S DISEASE
     Dosage: 3RD COURSE OF INFLIXIMAB TREATMENT
     Route: 042
     Dates: start: 20131216
  3. REMICADE [Suspect]
     Indication: CROHN^S DISEASE
     Dosage: 4TH COURSE OF INFLIXIMAB TREATMENT
     Route: 042
     Dates: start: 20140113, end: 20140113
  4. IMUREL [Concomitant]
     Route: 048
     Dates: start: 20130911
  5. CORTANCYL [Concomitant]
     Route: 048
     Dates: start: 20130720
  6. FERROSTRANE [Concomitant]
     Dosage: 2 TO 3 SPOONS PER DAY
     Route: 048
     Dates: start: 20131115
  7. POLARAMINE (DEXCHLORPHENIRAMINE) [Concomitant]
     Indication: PREMEDICATION
     Dosage: 2 TO 3 SPOONS PER DAY
     Route: 042
     Dates: start: 20140113

REACTIONS (4)
  - Anaphylactic shock [Recovered/Resolved]
  - Infusion related reaction [Recovered/Resolved]
  - Pyrexia [Recovered/Resolved]
  - Off label use [Unknown]
